FAERS Safety Report 10799112 (Version 1)
Quarter: 2015Q1

REPORT INFORMATION
  Report Type: Spontaneous
  Country: US (occurrence: US)
  Receive Date: 20150216
  Receipt Date: 20150216
  Transmission Date: 20150721
  Serious: No
  Sender: FDA-Public Use
  Company Number: US-ALLERGAN-1403308US

PATIENT
  Age: 59 Year
  Sex: Female

DRUGS (8)
  1. ENZYMES NOS [Concomitant]
     Indication: PRODUCT USED FOR UNKNOWN INDICATION
     Dosage: UNK
  2. SUPPLEMENTS NOS [Concomitant]
     Indication: METABOLIC DISORDER
     Dosage: UNK
  3. LEVOCARTININE 10% SOLUTION [Concomitant]
     Indication: METABOLIC DISORDER
     Dosage: 5 UNK, UNK
     Route: 048
  4. OMEGA 3                            /01333901/ [Concomitant]
     Indication: PRODUCT USED FOR UNKNOWN INDICATION
     Dosage: UNK
  5. RESTASIS [Suspect]
     Active Substance: CYCLOSPORINE
     Indication: OCULAR ROSACEA
     Dosage: 2 GTT, BID
     Route: 047
     Dates: start: 20131015
  6. OASIS PLUS [Concomitant]
     Indication: PRODUCT USED FOR UNKNOWN INDICATION
     Dosage: UNK
  7. PROLENZA [Concomitant]
     Indication: METABOLIC DISORDER
     Dosage: 2 GTT, UNK
     Route: 047
  8. RETAINE EYE DROPS [Concomitant]
     Indication: PRODUCT USED FOR UNKNOWN INDICATION
     Dosage: UNK

REACTIONS (9)
  - Muscle spasms [Unknown]
  - Musculoskeletal stiffness [Unknown]
  - Product taste abnormal [Unknown]
  - Blood pressure increased [Unknown]
  - Peripheral swelling [Unknown]
  - Joint swelling [Unknown]
  - Off label use [Unknown]
  - Mood altered [Unknown]
  - Asthenopia [Unknown]
